FAERS Safety Report 21324711 (Version 1)
Quarter: 2022Q3

REPORT INFORMATION
  Report Type: Spontaneous
  Country: US (occurrence: US)
  Receive Date: 20220912
  Receipt Date: 20220912
  Transmission Date: 20221027
  Serious: Yes (Other)
  Sender: FDA-Public Use
  Company Number: US-LUPIN PHARMACEUTICALS INC.-2022-10972

PATIENT
  Age: 14 Year
  Sex: Female

DRUGS (1)
  1. VORICONAZOLE [Suspect]
     Active Substance: VORICONAZOLE
     Indication: Bronchopulmonary aspergillosis
     Dosage: UNK
     Route: 065

REACTIONS (2)
  - Condition aggravated [Unknown]
  - Drug ineffective [Unknown]
